FAERS Safety Report 7116153-0 (Version None)
Quarter: 2010Q4

REPORT INFORMATION
  Report Type: 
  Country: None (occurrence: None)
  Receive Date: 20101122
  Receipt Date: 20101110
  Transmission Date: 20110411
  Serious: Yes (Hospitalization)
  Sender: FDA-Public Use
  Company Number: PHHY2010DE73300

PATIENT
  Age: 77 Year
  Sex: Male

DRUGS (8)
  1. RASILEZ [Suspect]
  2. METOPROLOL TARTRATE [Concomitant]
     Indication: CORONARY ARTERY DISEASE
     Dosage: 47.5 MG/D
     Route: 048
  3. ANGIOTENSIN II ANTAGONISTS [Concomitant]
  4. SPIRONOLACTONE [Concomitant]
  5. BLOPRESS [Concomitant]
     Indication: CORONARY ARTERY DISEASE
     Dosage: 16 MG, UNK
     Route: 048
  6. MARCUMAR [Concomitant]
     Indication: CORONARY ARTERY DISEASE
     Dosage: ACCORDING INR
  7. DIGITALIS TAB [Concomitant]
  8. XIPAMIDE [Concomitant]
     Indication: CORONARY ARTERY DISEASE
     Dosage: 10 MG, UNK

REACTIONS (5)
  - BLOOD CREATININE INCREASED [None]
  - BRADYARRHYTHMIA [None]
  - CARDIAC PACEMAKER INSERTION [None]
  - HYPERKALAEMIA [None]
  - RENAL FAILURE [None]
